FAERS Safety Report 12921138 (Version 3)
Quarter: 2016Q4

REPORT INFORMATION
  Report Type: Spontaneous
  Country: JP (occurrence: JP)
  Receive Date: 20161107
  Receipt Date: 20161209
  Transmission Date: 20170207
  Serious: Yes (Hospitalization)
  Sender: FDA-Public Use
  Company Number: JP-MYLANLABS-2016M1046892

PATIENT

DRUGS (6)
  1. CICLOSPORIN MYLAN [Suspect]
     Active Substance: CYCLOSPORINE
     Indication: PROPHYLAXIS AGAINST GRAFT VERSUS HOST DISEASE
     Route: 065
  2. CYCLOPHOSPHAMIDE. [Suspect]
     Active Substance: CYCLOPHOSPHAMIDE
     Indication: APLASTIC ANAEMIA
     Dosage: 3000 MG/M2, QD
     Route: 065
  3. FLUDARABINE [Suspect]
     Active Substance: FLUDARABINE PHOSPHATE
     Indication: APLASTIC ANAEMIA
     Dosage: 120 MG/M2, QD
     Route: 065
  4. METHOTREXATE. [Suspect]
     Active Substance: METHOTREXATE
     Indication: PROPHYLAXIS AGAINST GRAFT VERSUS HOST DISEASE
     Route: 065
  5. THYMOGLOBULINE [Suspect]
     Active Substance: LAPINE T-LYMPHOCYTE IMMUNE GLOBULIN
     Indication: APLASTIC ANAEMIA
     Dosage: 3.75MG/KG*5
     Route: 065
  6. CICLOSPORIN MYLAN [Suspect]
     Active Substance: CYCLOSPORINE
     Indication: APLASTIC ANAEMIA

REACTIONS (7)
  - Bone marrow failure [Recovered/Resolved]
  - Infusion related reaction [Unknown]
  - Cytomegalovirus viraemia [Unknown]
  - Oligoastrocytoma [Unknown]
  - Acute graft versus host disease [Recovered/Resolved]
  - BK virus infection [Unknown]
  - Cystitis viral [Unknown]
